FAERS Safety Report 15809647 (Version 1)
Quarter: 2019Q1

REPORT INFORMATION
  Report Type: Spontaneous
  Country: US (occurrence: US)
  Receive Date: 20190111
  Receipt Date: 20190111
  Transmission Date: 20190417
  Serious: No
  Sender: FDA-Public Use
  Company Number: US-ROCHE-2046824

PATIENT
  Age: 63 Year
  Sex: Female
  Weight: 56.75 kg

DRUGS (3)
  1. RITUXAN [Suspect]
     Active Substance: RITUXIMAB
     Indication: MULTIPLE SCLEROSIS
     Dosage: RECEIVED FIRST 2 DOSES OF 2000 MG EACH
     Route: 042
     Dates: start: 20170616
  2. RITUXAN [Suspect]
     Active Substance: RITUXIMAB
     Route: 042
     Dates: start: 20171212
  3. RITUXAN [Suspect]
     Active Substance: RITUXIMAB
     Dosage: RECEIVED FIRST 2 DOSES OF 2000 MG EACH
     Route: 042
     Dates: start: 20170630

REACTIONS (4)
  - Off label use [Unknown]
  - Intentional product use issue [Unknown]
  - Condition aggravated [Unknown]
  - Rash [Not Recovered/Not Resolved]

NARRATIVE: CASE EVENT DATE: 201712
